FAERS Safety Report 5748529-8 (Version None)
Quarter: 2008Q2

REPORT INFORMATION
  Report Type: 
  Country: None (occurrence: None)
  Receive Date: 20080520
  Receipt Date: 20080512
  Transmission Date: 20081010
  Serious: Yes (Death, Hospitalization)
  Sender: FDA-Public Use
  Company Number: SPV1-2008-00276

PATIENT
  Age: 27 Year
  Sex: Male
  Weight: 36.3 kg

DRUGS (9)
  1. ELAPRASE [Suspect]
     Indication: MUCOPOLYSACCHARIDOSIS II
     Dosage: 0.5 MG/KG, 1X/WEEK, IV DRIP
     Route: 041
     Dates: start: 20070319, end: 20070924
  2. ZANTAC /00550801/ (RANITIDINE) [Concomitant]
  3. FLOVENT [Concomitant]
  4. DILANTIN [Concomitant]
  5. ALPRAZOLAM [Concomitant]
  6. COMBIVENT /01033501/ (IPRATROPIUM BROMIDE, SALBUTAMOL) [Concomitant]
  7. ALBUTEROL /00139501/ (SALBUTAMOL) [Concomitant]
  8. DOCUSATE (DOCUSATE) [Concomitant]
  9. PREDNISONE TAB [Concomitant]

REACTIONS (6)
  - ACIDOSIS [None]
  - BRONCHIAL OBSTRUCTION [None]
  - GRAND MAL CONVULSION [None]
  - HYPERCAPNIA [None]
  - OBSTRUCTIVE AIRWAYS DISORDER [None]
  - RESPIRATORY FAILURE [None]
